FAERS Safety Report 15561913 (Version 2)
Quarter: 2019Q1

REPORT INFORMATION
  Report Type: Spontaneous
  Country: US (occurrence: US)
  Receive Date: 20181029
  Receipt Date: 20190228
  Transmission Date: 20190417
  Serious: No
  Sender: FDA-Public Use
  Company Number: US-SA-2018SA295750

PATIENT
  Sex: Male

DRUGS (1)
  1. LUMIZYME [Suspect]
     Active Substance: ALGLUCOSIDASE ALFA
     Indication: GLYCOGEN STORAGE DISEASE TYPE V
     Dosage: 1600 MG, QOW
     Route: 041
     Dates: start: 20130816

REACTIONS (2)
  - Product use issue [Unknown]
  - Malaise [Unknown]
